FAERS Safety Report 9345488 (Version 1)
Quarter: 2013Q2

REPORT INFORMATION
  Report Type: Spontaneous
  Country: FR (occurrence: FR)
  Receive Date: 20130613
  Receipt Date: 20130613
  Transmission Date: 20140414
  Serious: Yes (Other)
  Sender: FDA-Public Use
  Company Number: FR-JNJFOC-20130603532

PATIENT
  Age: 17 Year
  Sex: Female

DRUGS (4)
  1. REMICADE [Suspect]
     Indication: CROHN^S DISEASE
     Dosage: GOOD TOLERANCE
     Route: 042
     Dates: start: 20130409
  2. REMICADE [Suspect]
     Indication: CROHN^S DISEASE
     Route: 042
     Dates: start: 201208, end: 20130228
  3. REMICADE [Suspect]
     Indication: CROHN^S DISEASE
     Dosage: 1 DF PER CYCLE
     Route: 042
     Dates: start: 2012, end: 201205
  4. VENOFER [Concomitant]
     Dosage: 1 INJECTION
     Route: 042
     Dates: start: 20130307

REACTIONS (2)
  - Vascular purpura [Recovered/Resolved]
  - Arthralgia [Recovered/Resolved]
